FAERS Safety Report 21685330 (Version 1)
Quarter: 2022Q4

REPORT INFORMATION
  Report Type: Spontaneous
  Country: US (occurrence: US)
  Receive Date: 20221206
  Receipt Date: 20221206
  Transmission Date: 20230112
  Serious: No
  Sender: FDA-Public Use
  Company Number: US-CHIESI-2022CHF05683

PATIENT
  Sex: Female
  Weight: 64 kg

DRUGS (7)
  1. FERRIPROX [Suspect]
     Active Substance: DEFERIPRONE
     Indication: Sickle cell disease
     Dosage: 2000 MILLIGRAM, BID
     Route: 048
     Dates: start: 20220914
  2. FERRIPROX [Suspect]
     Active Substance: DEFERIPRONE
     Indication: Haemochromatosis
     Dosage: UNK
     Route: 048
  3. FERRIPROX [Suspect]
     Active Substance: DEFERIPRONE
     Indication: Transfusion
  4. HYDROXYUREA [Concomitant]
     Active Substance: HYDROXYUREA
     Indication: Product used for unknown indication
     Dosage: UNK
  5. FOLIC ACID [Concomitant]
     Active Substance: FOLIC ACID
     Indication: Product used for unknown indication
     Dosage: UNK
  6. OXBRYTA [Concomitant]
     Active Substance: VOXELOTOR
     Indication: Product used for unknown indication
     Dosage: UNK
  7. DESFERAL [Concomitant]
     Active Substance: DEFEROXAMINE MESYLATE
     Indication: Product used for unknown indication
     Dosage: UNK

REACTIONS (2)
  - Gastrooesophageal reflux disease [Recovering/Resolving]
  - Off label use [Not Recovered/Not Resolved]

NARRATIVE: CASE EVENT DATE: 20220101
